FAERS Safety Report 7750205-7 (Version None)
Quarter: 2011Q3

REPORT INFORMATION
  Report Type: 
  Country: None (occurrence: None)
  Receive Date: 20110914
  Receipt Date: 20110912
  Transmission Date: 20111222
  Serious: Yes (Hospitalization, Other)
  Sender: FDA-Public Use
  Company Number: US-PFIZER INC-2011132468

PATIENT
  Sex: Male

DRUGS (11)
  1. SEROQUEL [Concomitant]
     Indication: DEPRESSION
  2. DEPAKOTE [Concomitant]
     Indication: DEPRESSION
     Dosage: UNK
     Dates: start: 20080101, end: 20080327
  3. TRAZODONE [Concomitant]
     Indication: INSOMNIA
     Dosage: UNK
     Dates: start: 20070101
  4. XANAX [Concomitant]
     Indication: ANXIETY
     Dosage: UNK
     Dates: start: 20040101
  5. SEROQUEL [Concomitant]
     Indication: INSOMNIA
  6. PROPECIA [Concomitant]
     Indication: ALOPECIA
     Dosage: UNK
     Dates: start: 20060101
  7. SEROQUEL [Concomitant]
     Indication: BIPOLAR DISORDER
     Dosage: UNK
     Dates: start: 20060101
  8. TRAZODONE [Concomitant]
     Indication: DEPRESSION
  9. CHANTIX [Suspect]
     Indication: SMOKING CESSATION THERAPY
     Dosage: STARTER PACK
     Dates: start: 20080329, end: 20080412
  10. SEROQUEL [Concomitant]
     Indication: ANXIETY
  11. TRAZODONE [Concomitant]
     Indication: ANXIETY

REACTIONS (11)
  - PSYCHOTIC DISORDER [None]
  - INSOMNIA [None]
  - PERSONALITY DISORDER [None]
  - HOMICIDAL IDEATION [None]
  - INTENTIONAL OVERDOSE [None]
  - SCHIZOPHRENIA [None]
  - MENTAL DISORDER [None]
  - SUICIDE ATTEMPT [None]
  - DEPRESSION [None]
  - ANXIETY [None]
  - BIPOLAR DISORDER [None]
